FAERS Safety Report 26177637 (Version 1)
Quarter: 2025Q4

REPORT INFORMATION
  Report Type: Report from Study
  Country: CA (occurrence: CA)
  Receive Date: 20251219
  Receipt Date: 20251219
  Transmission Date: 20260117
  Serious: Yes (Other)
  Sender: TEVA
  Company Number: CA-TEVA-VS-3374537

PATIENT
  Age: 37 Year
  Sex: Female

DRUGS (5)
  1. COPAXONE [Suspect]
     Active Substance: GLATIRAMER ACETATE
     Indication: Multiple sclerosis
     Dosage: TIME INTERVAL: 0.33333333 WEEKS
     Route: 058
     Dates: start: 20250727
  2. VYVANSE [Concomitant]
     Active Substance: LISDEXAMFETAMINE DIMESYLATE
     Indication: Product used for unknown indication
     Dosage: ACTIVE
     Route: 065
  3. PREDNISONE [Concomitant]
     Active Substance: PREDNISONE
     Indication: Product used for unknown indication
     Dosage: HIGH DOSE/SHORT TERM (5 DAYS)
     Route: 065
     Dates: end: 20250826
  4. BISOPROLOL [Concomitant]
     Active Substance: BISOPROLOL
     Indication: Product used for unknown indication
     Dosage: ACTIVE
     Route: 065
  5. AMLODIPINE [Concomitant]
     Active Substance: AMLODIPINE BESYLATE
     Indication: Product used for unknown indication
     Dosage: ACTIVE
     Route: 065

REACTIONS (12)
  - Chest crushing [Unknown]
  - Immediate post-injection reaction [Unknown]
  - Dyspnoea [Unknown]
  - Visual impairment [Unknown]
  - Dizziness [Unknown]
  - Nausea [Unknown]
  - Dizziness [Unknown]
  - Fatigue [Unknown]
  - Flushing [Unknown]
  - Tremor [Unknown]
  - Multiple sclerosis relapse [Unknown]
  - Drug ineffective [Unknown]

NARRATIVE: CASE EVENT DATE: 20250101
